FAERS Safety Report 12991281 (Version 1)
Quarter: 2016Q4

REPORT INFORMATION
  Report Type: Spontaneous
  Country: US (occurrence: US)
  Receive Date: 20161201
  Receipt Date: 20161201
  Transmission Date: 20170207
  Serious: Yes (Other)
  Sender: FDA-Public Use
  Company Number: US-DEPOMED, INC.-US-2016DEP012869

PATIENT

DRUGS (1)
  1. NUCYNTA ER [Suspect]
     Active Substance: TAPENTADOL HYDROCHLORIDE
     Indication: FIBROMYALGIA
     Dosage: 1 DF, BID
     Route: 048
     Dates: start: 2011, end: 2013

REACTIONS (3)
  - Dysphagia [Recovered/Resolved]
  - Tonsil cancer [Not Recovered/Not Resolved]
  - Malignant palate neoplasm [Not Recovered/Not Resolved]

NARRATIVE: CASE EVENT DATE: 2013
